FAERS Safety Report 8325183-2 (Version None)
Quarter: 2012Q2

REPORT INFORMATION
  Report Type: 
  Country: None (occurrence: None)
  Receive Date: 20120427
  Receipt Date: 20120420
  Transmission Date: 20120825
  Serious: Yes (Hospitalization)
  Sender: FDA-Public Use
  Company Number: 2012SP015756

PATIENT
  Age: 66 Year
  Sex: Female

DRUGS (6)
  1. BUSPAR [Concomitant]
  2. SAPHRIS [Suspect]
     Indication: SCHIZOAFFECTIVE DISORDER
     Dosage: 5 MG;BID;SL 15 MG
     Route: 060
     Dates: start: 20120314
  3. SAPHRIS [Suspect]
     Indication: SCHIZOAFFECTIVE DISORDER
     Dosage: 5 MG;BID;SL 15 MG
     Route: 060
     Dates: end: 20120326
  4. VALIUM [Concomitant]
  5. TOPAMAX [Concomitant]
  6. ABILIFY [Concomitant]

REACTIONS (2)
  - VOMITING [None]
  - NAUSEA [None]
